FAERS Safety Report 8294174-2 (Version None)
Quarter: 2012Q2

REPORT INFORMATION
  Report Type: 
  Country: None (occurrence: None)
  Receive Date: 20120418
  Receipt Date: 20120412
  Transmission Date: 20120825
  Serious: Yes (Other)
  Sender: FDA-Public Use
  Company Number: PHHY2012JP031698

PATIENT
  Sex: Male

DRUGS (3)
  1. TEGRETOL [Suspect]
     Indication: EPILEPSY
     Dosage: 400 MG, DAILY
     Route: 048
  2. TEGRETOL [Suspect]
     Dosage: 400 MG, DAILY
     Route: 048
  3. TEGRETOL [Suspect]
     Dosage: 200 MG, DAILY
     Route: 048

REACTIONS (3)
  - ANURIA [None]
  - DIZZINESS [None]
  - CONVULSION [None]
